FAERS Safety Report 7752277-2 (Version None)
Quarter: 2011Q3

REPORT INFORMATION
  Report Type: 
  Country: None (occurrence: None)
  Receive Date: 20110915
  Receipt Date: 20110830
  Transmission Date: 20111222
  Serious: Yes (Life-Threatening, Hospitalization, Other)
  Sender: FDA-Public Use
  Company Number: US-BAYER-2010-004330

PATIENT
  Age: 37 Year
  Sex: Female
  Weight: 63.946 kg

DRUGS (4)
  1. ADVIL LIQUI-GELS [Concomitant]
     Dosage: UNK UNK, PRN
  2. YAZ [Suspect]
     Indication: ACNE
  3. ACCUTANE [Concomitant]
     Indication: ACNE
     Dosage: 40 MG, QD
     Route: 048
     Dates: start: 20080624, end: 20081223
  4. YAZ [Suspect]
     Indication: CONTRACEPTION
     Dosage: UNK
     Dates: start: 20080720, end: 20081218

REACTIONS (8)
  - PULMONARY INFARCTION [None]
  - INJURY [None]
  - PAIN [None]
  - MUSCULOSKELETAL CHEST PAIN [None]
  - MUSCULOSKELETAL PAIN [None]
  - HAEMOPTYSIS [None]
  - PULMONARY EMBOLISM [None]
  - DEEP VEIN THROMBOSIS [None]
